FAERS Safety Report 9883641 (Version 3)
Quarter: 2014Q2

REPORT INFORMATION
  Report Type: Spontaneous
  Country: CH (occurrence: CH)
  Receive Date: 20140210
  Receipt Date: 20140422
  Transmission Date: 20141212
  Serious: Yes (Hospitalization, Other)
  Sender: FDA-Public Use
  Company Number: CH-ROCHE-1346147

PATIENT
  Sex: Female

DRUGS (6)
  1. LUCENTIS [Suspect]
     Indication: CHOROIDAL NEOVASCULARISATION
     Route: 050
  2. LUCENTIS [Suspect]
     Indication: DIABETIC RETINAL OEDEMA
     Route: 050
     Dates: start: 20111109
  3. LUCENTIS [Suspect]
     Route: 050
     Dates: start: 20130121
  4. LUCENTIS [Suspect]
     Route: 050
     Dates: start: 20140108
  5. NOVORAPID [Concomitant]
  6. INSULIN [Concomitant]

REACTIONS (5)
  - Endophthalmitis [Unknown]
  - Retinal oedema [Unknown]
  - Staphylococcal infection [Unknown]
  - Anterior capsule contraction [Unknown]
  - Anterior chamber disorder [Unknown]
